FAERS Safety Report 11752461 (Version 2)
Quarter: 2015Q4

REPORT INFORMATION
  Report Type: Report from Study
  Country: CN (occurrence: CN)
  Receive Date: 20151118
  Receipt Date: 20151125
  Transmission Date: 20160304
  Serious: Yes (Other)
  Sender: FDA-Public Use
  Company Number: CN-ROCHE-1662865

PATIENT
  Sex: Male
  Weight: 95 kg

DRUGS (1)
  1. AVASTIN [Suspect]
     Active Substance: BEVACIZUMAB
     Indication: COLON CANCER
     Route: 041
     Dates: start: 20150925, end: 20150925

REACTIONS (4)
  - Upper gastrointestinal haemorrhage [Unknown]
  - Decreased appetite [Unknown]
  - Haematochezia [Unknown]
  - Weight decreased [Unknown]
